FAERS Safety Report 4696172-4 (Version None)
Quarter: 2005Q2

REPORT INFORMATION
  Report Type: 
  Country: None (occurrence: None)
  Receive Date: 20050621
  Receipt Date: 20050610
  Transmission Date: 20051028
  Serious: Yes (Hospitalization)
  Sender: FDA-Public Use
  Company Number: JP-JNJFOC-20050502677

PATIENT
  Sex: Male
  Weight: 69.8 kg

DRUGS (17)
  1. REMICADE [Suspect]
     Route: 042
  2. REMICADE [Suspect]
     Dosage: FOURTH DOSE
     Route: 042
  3. REMICADE [Suspect]
     Route: 042
  4. REMICADE [Suspect]
     Dosage: SECOND DOSE
     Route: 042
  5. REMICADE [Suspect]
     Indication: RHEUMATOID ARTHRITIS
     Route: 042
  6. RHEUMATREX [Suspect]
     Route: 049
  7. RHEUMATREX [Suspect]
     Route: 049
  8. RHEUMATREX [Suspect]
     Route: 049
  9. RHEUMATREX [Suspect]
     Indication: RHEUMATOID ARTHRITIS
     Route: 049
  10. PREDONIN [Concomitant]
     Indication: RHEUMATOID ARTHRITIS
     Route: 049
  11. LOXONIN [Concomitant]
     Indication: RHEUMATOID ARTHRITIS
     Route: 049
  12. FOLIAMIN [Concomitant]
     Indication: PROPHYLAXIS
     Route: 049
  13. AMLODIN [Concomitant]
     Route: 049
  14. HARNAL [Concomitant]
     Route: 049
  15. MUCODYNE [Concomitant]
     Indication: BRONCHIECTASIS
     Route: 049
  16. GASTER-D [Concomitant]
     Route: 049
  17. RYTHMODAN [Concomitant]
     Route: 049

REACTIONS (4)
  - ACINETOBACTER INFECTION [None]
  - BRONCHIECTASIS [None]
  - PNEUMONIA [None]
  - PNEUMONITIS CRYPTOCOCCAL [None]
